FAERS Safety Report 9307723 (Version 1)
Quarter: 2013Q2

REPORT INFORMATION
  Report Type: Spontaneous
  Country: JP (occurrence: JP)
  Receive Date: 20130524
  Receipt Date: 20130524
  Transmission Date: 20140414
  Serious: Yes (Other)
  Sender: FDA-Public Use
  Company Number: JP-SANOFI-AVENTIS-2013SA050833

PATIENT
  Sex: Female

DRUGS (6)
  1. LANTUS SOLOSTAR [Suspect]
     Indication: PRODUCT USED FOR UNKNOWN INDICATION
     Route: 058
     Dates: start: 201210
  2. LANTUS SOLOSTAR [Suspect]
     Indication: PRODUCT USED FOR UNKNOWN INDICATION
     Route: 058
  3. SOLOSTAR [Suspect]
     Indication: DEVICE THERAPY
     Route: 058
  4. SOLOSTAR [Suspect]
     Indication: DEVICE THERAPY
     Route: 058
  5. APIDRA SOLOSTAR [Suspect]
     Indication: PRODUCT USED FOR UNKNOWN INDICATION
     Dosage: DOSAGE: 8 IU IN THE MORNING, 5 IU AT NOON AND 4 IU IN THE EVENING
     Route: 058
     Dates: start: 201210
  6. SOLOSTAR [Suspect]
     Indication: DEVICE THERAPY
     Route: 058

REACTIONS (3)
  - Loss of consciousness [Unknown]
  - Asthenia [Unknown]
  - Dizziness postural [Unknown]
